FAERS Safety Report 25196273 (Version 1)
Quarter: 2025Q2

REPORT INFORMATION
  Report Type: Spontaneous
  Country: US (occurrence: US)
  Receive Date: 20250415
  Receipt Date: 20250415
  Transmission Date: 20250716
  Serious: No
  Sender: MERCK SHARP AND DOHME
  Company Number: US-009507513-2268543

PATIENT
  Sex: Male

DRUGS (1)
  1. STEGLATRO [Suspect]
     Active Substance: ERTUGLIFLOZIN PIDOLATE
     Dosage: 5 MG / ONCE DAILY
     Route: 048

REACTIONS (5)
  - Product dose omission issue [Unknown]
  - Insurance issue [Unknown]
  - No adverse event [Unknown]
  - Product use issue [Unknown]
  - Inability to afford medication [Unknown]

NARRATIVE: CASE EVENT DATE: 20250201
